FAERS Safety Report 9148808 (Version 1)
Quarter: 2013Q1

REPORT INFORMATION
  Report Type: Report from Study
  Country: US (occurrence: US)
  Receive Date: 20130308
  Receipt Date: 20130308
  Transmission Date: 20140127
  Serious: Yes (Death, Hospitalization, Other)
  Sender: FDA-Public Use
  Company Number: US-GENZYME-CLOF-1002506

PATIENT
  Age: 58 None
  Sex: Female
  Weight: 76.1 kg

DRUGS (23)
  1. CLOLAR [Suspect]
     Indication: BONE MARROW CONDITIONING REGIMEN
     Dosage: 66 MG, QDX5
     Route: 065
     Dates: start: 20130118, end: 20130122
  2. CLOLAR [Suspect]
     Indication: ACUTE MYELOID LEUKAEMIA
  3. BUSULFAN [Suspect]
     Indication: BONE MARROW CONDITIONING REGIMEN
     Dosage: 174/255 MG,UNK
     Route: 065
     Dates: start: 20130119, end: 20130122
  4. BUSULFAN [Suspect]
     Indication: ACUTE MYELOID LEUKAEMIA
  5. AMBISOME [Suspect]
     Indication: PRODUCT USED FOR UNKNOWN INDICATION
     Dosage: UNK
     Route: 065
  6. AMBISOME [Suspect]
     Dosage: UNK
     Route: 065
  7. VORICONAZOLE [Suspect]
     Indication: PRODUCT USED FOR UNKNOWN INDICATION
     Dosage: 350 MG, Q 12 HOURS
     Route: 042
  8. ACYCLOVIR [Concomitant]
     Indication: PRODUCT USED FOR UNKNOWN INDICATION
     Dosage: 200 MG, QAM
     Route: 042
  9. CEFEPIME [Concomitant]
     Indication: PRODUCT USED FOR UNKNOWN INDICATION
     Dosage: 2G=100ML; UNK; Q24 HRS
     Route: 042
  10. CHLORHEXIDINE GLUCONATE [Concomitant]
     Indication: PRODUCT USED FOR UNKNOWN INDICATION
     Dosage: UNK; QHS
     Route: 065
  11. CYCLOSPORINE [Concomitant]
     Indication: PRODUCT USED FOR UNKNOWN INDICATION
     Dosage: 6.5 MG/HR, CONTINUOUS
     Route: 042
  12. MYCOPHENOLATE MOFETIL [Concomitant]
     Indication: PRODUCT USED FOR UNKNOWN INDICATION
     Dosage: 1000 MG, Q12 HRS
     Route: 042
  13. DOCUSATE [Concomitant]
     Indication: PRODUCT USED FOR UNKNOWN INDICATION
     Dosage: 100 MG; BID
     Route: 065
  14. ESTRADIOL [Concomitant]
     Indication: PRODUCT USED FOR UNKNOWN INDICATION
     Dosage: 0.5 MG, QHS
     Route: 065
  15. FAT EMULSIONS [Concomitant]
     Indication: PRODUCT USED FOR UNKNOWN INDICATION
     Dosage: 250 ML, Q24 HOURS
     Route: 042
  16. INSULIN [Concomitant]
     Indication: PRODUCT USED FOR UNKNOWN INDICATION
     Dosage: UNK
     Route: 042
  17. FEXOFENADINE [Concomitant]
     Indication: PRODUCT USED FOR UNKNOWN INDICATION
     Dosage: 60 MG, QD
     Route: 065
  18. MEDROXYPROGESTERONE [Concomitant]
     Indication: PRODUCT USED FOR UNKNOWN INDICATION
     Dosage: 2.5 MG, QHS
     Route: 042
  19. PANTOPRAZOLE [Concomitant]
     Indication: PRODUCT USED FOR UNKNOWN INDICATION
     Dosage: 40 MG, QD
     Route: 042
  20. SENNA [Concomitant]
     Indication: PRODUCT USED FOR UNKNOWN INDICATION
     Dosage: 8.6 MG, QD
     Route: 065
  21. URSODIOL [Concomitant]
     Indication: PRODUCT USED FOR UNKNOWN INDICATION
     Dosage: 600MG/24ML, BID
     Route: 065
  22. VANCOMYCIN [Concomitant]
     Indication: PRODUCT USED FOR UNKNOWN INDICATION
     Dosage: 125 MG,Q 6 HRS
     Route: 065
  23. MICAFUNGIN [Concomitant]
     Indication: PRODUCT USED FOR UNKNOWN INDICATION
     Dosage: 150 MG, Q24 HOURS
     Route: 042

REACTIONS (11)
  - Multi-organ failure [Fatal]
  - Atrial fibrillation [Unknown]
  - Encephalopathy [Unknown]
  - Staphylococcal infection [Unknown]
  - Renal failure acute [Not Recovered/Not Resolved]
  - Hallucination [Unknown]
  - Lung consolidation [Unknown]
  - Bradycardia [Unknown]
  - Mental status changes [Unknown]
  - Metabolic acidosis [Not Recovered/Not Resolved]
  - Sepsis [Unknown]
